FAERS Safety Report 16871823 (Version 1)
Quarter: 2019Q4

REPORT INFORMATION
  Report Type: Spontaneous
  Country: US (occurrence: US)
  Receive Date: 20191001
  Receipt Date: 20191001
  Transmission Date: 20200122
  Serious: No
  Sender: FDA-Public Use
  Company Number: US-ELI_LILLY_AND_COMPANY-US201910000056

PATIENT
  Age: 72 Year
  Sex: Female

DRUGS (3)
  1. PROLIA [Suspect]
     Active Substance: DENOSUMAB
     Indication: MULTIPLE FRACTURES
     Dosage: UNK UNK, UNKNOWN
     Route: 065
     Dates: start: 201807
  2. FORTEO [Suspect]
     Active Substance: TERIPARATIDE
     Indication: OSTEOPOROSIS PROPHYLAXIS
     Dosage: 20 UG, DAILY
     Route: 065
     Dates: start: 201807, end: 201907
  3. FORTEO [Suspect]
     Active Substance: TERIPARATIDE
     Indication: MULTIPLE FRACTURES

REACTIONS (5)
  - Fractured coccyx [Unknown]
  - Anxiety [Unknown]
  - Hyperhidrosis [Unknown]
  - Contusion [Unknown]
  - Flushing [Unknown]
